FAERS Safety Report 14187356 (Version 1)
Quarter: 2017Q4

REPORT INFORMATION
  Report Type: Spontaneous
  Country: US (occurrence: US)
  Receive Date: 20171113
  Receipt Date: 20171113
  Transmission Date: 20180321
  Serious: Yes (Other)
  Sender: FDA-Public Use
  Company Number: None

PATIENT
  Age: 46 Year
  Sex: Female
  Weight: 73.8 kg

DRUGS (5)
  1. CLOBETASOL [Suspect]
     Active Substance: CLOBETASOL
     Indication: DERMATITIS ATOPIC
  2. BIOTIN [Concomitant]
     Active Substance: BIOTIN
  3. DUPIXENT [Concomitant]
     Active Substance: DUPILUMAB
  4. VITAMIN C [Concomitant]
     Active Substance: ASCORBIC ACID
  5. COD LIVER OIL [Concomitant]
     Active Substance: COD LIVER OIL

REACTIONS (7)
  - Depression [None]
  - Pruritus [None]
  - Insomnia [None]
  - Rash generalised [None]
  - Pain [None]
  - Suicidal ideation [None]
  - Skin exfoliation [None]

NARRATIVE: CASE EVENT DATE: 20170228
